FAERS Safety Report 5117187-8 (Version None)
Quarter: 2006Q3

REPORT INFORMATION
  Report Type: 
  Country: None (occurrence: None)
  Receive Date: 20060926
  Receipt Date: 20060913
  Transmission Date: 20061208
  Serious: Yes (Hospitalization, Other)
  Sender: FDA-Public Use
  Company Number: 2006111192

PATIENT
  Age: 62 Year
  Sex: Female
  Weight: 61.2356 kg

DRUGS (4)
  1. LYRICA [Suspect]
     Indication: MOOD ALTERED
     Dosage: (50 MG)
     Dates: start: 20060801
  2. METHADONE HCL [Suspect]
     Indication: DETOXIFICATION
     Dates: end: 20060801
  3. KLONOPIN [Concomitant]
  4. ADVIL [Concomitant]

REACTIONS (11)
  - ASTHENIA [None]
  - BURNING SENSATION [None]
  - DIZZINESS [None]
  - DRUG INEFFECTIVE [None]
  - ERYTHEMA [None]
  - FLUSHING [None]
  - GAIT DISTURBANCE [None]
  - ILL-DEFINED DISORDER [None]
  - INCORRECT DOSE ADMINISTERED [None]
  - SWOLLEN TONGUE [None]
  - TREATMENT NONCOMPLIANCE [None]
